FAERS Safety Report 15614793 (Version 2)
Quarter: 2019Q1

REPORT INFORMATION
  Report Type: Report from Study
  Country: FR (occurrence: FR)
  Receive Date: 20181113
  Receipt Date: 20190319
  Transmission Date: 20190417
  Serious: Yes (Life-Threatening, Hospitalization)
  Sender: FDA-Public Use
  Company Number: FR-ROCHE-2131176

PATIENT
  Age: 60 Year
  Sex: Male
  Weight: 84 kg

DRUGS (37)
  1. OBINUTUZUMAB. [Suspect]
     Active Substance: OBINUTUZUMAB
     Indication: NON-HODGKIN^S LYMPHOMA
     Dosage: ON DAYS 2, 8, AND 15 OF CYCLE 1 AND ON DAY 1 OF CYCLES 2 THROUGH 8
     Route: 042
     Dates: start: 20180524, end: 20180524
  2. CC-122 [Suspect]
     Active Substance: AVADOMIDE
     Indication: NON-HODGKIN^S LYMPHOMA
     Dosage: ON DAY 1 FOR 5 CONSECUTIVE DAYS FOLLOWED BY 2 DAYS OFF STUDY DRUG EVERY 7 DAYS (5/7-DAY SCHEDULE) IN
     Route: 048
     Dates: start: 20180523, end: 20180525
  3. ROXITHROMYCINE [Concomitant]
     Active Substance: ROXITHROMYCIN
     Route: 065
     Dates: start: 20181203, end: 20181204
  4. HIZENTRA [Concomitant]
     Active Substance: HUMAN IMMUNOGLOBULIN G
     Route: 065
     Dates: start: 20190306, end: 20190306
  5. CC-122 [Suspect]
     Active Substance: AVADOMIDE
     Dosage: ON DAY 1 FOR 5 CONSECUTIVE DAYS FOLLOWED BY 2 DAYS OFF STUDY DRUG EVERY 7 DAYS (5/7-DAY SCHEDULE) IN
     Route: 048
     Dates: start: 20181010, end: 20181031
  6. SERETIDE [Concomitant]
     Active Substance: FLUTICASONE PROPIONATE\SALMETEROL XINAFOATE
     Indication: ASTHMA
     Route: 055
  7. FILGRASTIM [Concomitant]
     Active Substance: FILGRASTIM
     Dosage: 30 MU
     Route: 058
     Dates: start: 20180821, end: 20180824
  8. FILGRASTIM [Concomitant]
     Active Substance: FILGRASTIM
     Dosage: 30 MU
     Route: 058
     Dates: start: 20180924, end: 20180925
  9. POTASSIUM CHLORIDE. [Concomitant]
     Active Substance: POTASSIUM CHLORIDE
     Indication: PROPHYLAXIS
     Route: 048
     Dates: start: 20181105, end: 20181109
  10. OBINUTUZUMAB. [Suspect]
     Active Substance: OBINUTUZUMAB
     Dosage: CYCLE 6 DAY 1?DRUG INTERRUPTED ON 31/OCT/2018
     Route: 042
     Dates: start: 20181009, end: 20181009
  11. NORFLOXACIN [Concomitant]
     Active Substance: NORFLOXACIN
     Indication: INFECTION PROPHYLAXIS
     Route: 048
     Dates: start: 20180530, end: 20180601
  12. POLARAMINE [Concomitant]
     Active Substance: DEXCHLORPHENIRAMINE MALEATE
     Indication: PREMEDICATION
     Route: 042
     Dates: start: 20180524, end: 20181009
  13. BISOPROLOL [Concomitant]
     Active Substance: BISOPROLOL
     Indication: ATRIAL FIBRILLATION
     Route: 048
     Dates: start: 20181105, end: 20181105
  14. FUROSEMIDE. [Concomitant]
     Active Substance: FUROSEMIDE
     Route: 048
     Dates: start: 20181108, end: 20181109
  15. FUROSEMIDE. [Concomitant]
     Active Substance: FUROSEMIDE
     Route: 048
     Dates: start: 20190306
  16. PRIVIGEN [Concomitant]
     Active Substance: HUMAN IMMUNOGLOBULIN G
     Dosage: ONCE
     Route: 065
     Dates: start: 20190130, end: 20190130
  17. CC-122 [Suspect]
     Active Substance: AVADOMIDE
     Dosage: ON DAY 1 FOR 5 CONSECUTIVE DAYS FOLLOWED BY 2 DAYS OFF STUDY DRUG EVERY 7 DAYS (5/7-DAY SCHEDULE) IN
     Route: 048
     Dates: start: 20190130, end: 20190210
  18. AVLOCARDYL [Concomitant]
     Active Substance: PROPRANOLOL HYDROCHLORIDE
     Route: 048
     Dates: start: 20180601, end: 20181101
  19. AVLOCARDYL [Concomitant]
     Active Substance: PROPRANOLOL HYDROCHLORIDE
     Route: 048
     Dates: start: 20181105
  20. BACTRIM [Concomitant]
     Active Substance: SULFAMETHOXAZOLE\TRIMETHOPRIM
     Indication: INFECTION PROPHYLAXIS
     Route: 048
     Dates: start: 20161003
  21. OBINUTUZUMAB. [Suspect]
     Active Substance: OBINUTUZUMAB
     Dosage: ON DAYS 2, 8, AND 15 OF CYCLE 1 AND ON DAY 1 OF CYCLES 2 THROUGH 8
     Route: 042
     Dates: start: 20180620
  22. CC-122 [Suspect]
     Active Substance: AVADOMIDE
     Dosage: ON DAY 1 FOR 5 CONSECUTIVE DAYS FOLLOWED BY 2 DAYS OFF STUDY DRUG EVERY 7 DAYS (5/7-DAY SCHEDULE) IN
     Route: 048
     Dates: start: 20180613, end: 20180616
  23. DIGOXINE [Concomitant]
     Active Substance: DIGOXIN
     Indication: ATRIAL FIBRILLATION
     Route: 048
     Dates: start: 20180528, end: 20180528
  24. FILGRASTIM [Concomitant]
     Active Substance: FILGRASTIM
     Dosage: 30 MU
     Route: 058
     Dates: start: 20181101, end: 20181104
  25. LEDERFOLINE [Concomitant]
     Active Substance: LEUCOVORIN CALCIUM
     Route: 065
     Dates: start: 20181210
  26. VALACICLOVIR [Concomitant]
     Active Substance: VALACYCLOVIR HYDROCHLORIDE
     Indication: PROPHYLAXIS
     Route: 048
     Dates: start: 20161003
  27. ALDACTONE [Concomitant]
     Active Substance: SPIRONOLACTONE
     Indication: OEDEMA PERIPHERAL
  28. PARACETAMOL [Concomitant]
     Active Substance: ACETAMINOPHEN
     Indication: PREMEDICATION
     Route: 048
     Dates: start: 20180524, end: 20181009
  29. FILGRASTIM [Concomitant]
     Active Substance: FILGRASTIM
     Dosage: 48 MU
     Route: 058
     Dates: start: 20190207, end: 20190216
  30. ROVAMYCINE [Concomitant]
     Active Substance: SPIRAMYCIN
     Route: 065
     Dates: start: 20181204, end: 20181205
  31. SALBUTAMOL [Concomitant]
     Active Substance: ALBUTEROL
     Route: 065
     Dates: start: 20181210, end: 20181216
  32. INOTUZUMAB OZOGAMICIN [Suspect]
     Active Substance: INOTUZUMAB OZOGAMICIN
     Indication: NON-HODGKIN^S LYMPHOMA
     Route: 065
  33. AVLOCARDYL [Concomitant]
     Active Substance: PROPRANOLOL HYDROCHLORIDE
     Indication: PORTAL HYPERTENSION
     Route: 048
     Dates: end: 20180528
  34. FILGRASTIM [Concomitant]
     Active Substance: FILGRASTIM
     Indication: NEUTROPENIA
     Dosage: 30 MU
     Route: 058
     Dates: start: 20180817, end: 20180818
  35. ALDACTONE [Concomitant]
     Active Substance: SPIRONOLACTONE
     Indication: ASCITES
     Route: 048
     Dates: start: 20180604, end: 20180612
  36. METHYLPREDNISOLONE. [Concomitant]
     Active Substance: METHYLPREDNISOLONE
     Indication: PREMEDICATION
     Route: 042
     Dates: start: 20180524, end: 20181009
  37. FUROSEMIDE. [Concomitant]
     Active Substance: FUROSEMIDE
     Indication: ATRIAL FIBRILLATION
     Route: 048
     Dates: start: 20181105, end: 20181107

REACTIONS (6)
  - Escherichia sepsis [Recovered/Resolved]
  - Sepsis [Recovered/Resolved]
  - Lung infection [Recovered/Resolved]
  - Oesophageal varices haemorrhage [Recovered/Resolved]
  - Pyrexia [Recovered/Resolved]
  - Transitional cell carcinoma [Recovered/Resolved]

NARRATIVE: CASE EVENT DATE: 20180526
